FAERS Safety Report 6064548-9 (Version None)
Quarter: 2009Q1

REPORT INFORMATION
  Report Type: 
  Country: None (occurrence: None)
  Receive Date: 20090204
  Receipt Date: 20090129
  Transmission Date: 20090719
  Serious: Yes (Other)
  Sender: FDA-Public Use
  Company Number: A0766641A

PATIENT
  Age: 59 Year
  Sex: Female
  Weight: 82.3 kg

DRUGS (1)
  1. AVANDIA [Suspect]
     Dosage: 8MG TWICE PER DAY
     Route: 048
     Dates: start: 20050101, end: 20080101

REACTIONS (5)
  - ABDOMINAL PAIN UPPER [None]
  - DEPRESSION [None]
  - HYPERTENSION [None]
  - MYOCARDIAL INFARCTION [None]
  - RENAL DISORDER [None]
